FAERS Safety Report 14223896 (Version 2)
Quarter: 2017Q4

REPORT INFORMATION
  Report Type: Report from Study
  Country: None (occurrence: US)
  Receive Date: 20171126
  Receipt Date: 20171205
  Transmission Date: 20180321
  Serious: Yes (Other)
  Sender: FDA-Public Use
  Company Number: US-ABBVIE-17K-163-2173115-00

PATIENT
  Age: 52 Year
  Sex: Male

DRUGS (2)
  1. HUMIRA [Suspect]
     Active Substance: ADALIMUMAB
     Indication: RHEUMATOID ARTHRITIS
     Route: 058
  2. HUMIRA [Suspect]
     Active Substance: ADALIMUMAB
     Route: 058
     Dates: end: 201711

REACTIONS (7)
  - Depression [Unknown]
  - Nasopharyngitis [Unknown]
  - Liver injury [Unknown]
  - Hyperhidrosis [Unknown]
  - Night sweats [Unknown]
  - Soft tissue mass [Recovering/Resolving]
  - Large granular lymphocytosis [Unknown]

NARRATIVE: CASE EVENT DATE: 201711
